FAERS Safety Report 7772421-0 (Version None)
Quarter: 2011Q3

REPORT INFORMATION
  Report Type: 
  Country: None (occurrence: None)
  Receive Date: 20110921
  Receipt Date: 20110921
  Transmission Date: 20111222
  Serious: Yes (Hospitalization)
  Sender: FDA-Public Use
  Company Number: None

PATIENT
  Sex: Male
  Weight: 91.6 kg

DRUGS (2)
  1. PEMETREXED [Suspect]
     Dosage: 1070 MG
  2. CISPLATIN [Suspect]
     Dosage: 161 MG

REACTIONS (6)
  - BODY TEMPERATURE INCREASED [None]
  - COUGH [None]
  - OEDEMA PERIPHERAL [None]
  - NAUSEA [None]
  - INCREASED UPPER AIRWAY SECRETION [None]
  - PNEUMONIA ASPIRATION [None]
